FAERS Safety Report 24696451 (Version 1)
Quarter: 2024Q4

REPORT INFORMATION
  Report Type: Spontaneous
  Country: RS (occurrence: RS)
  Receive Date: 20241204
  Receipt Date: 20241204
  Transmission Date: 20250115
  Serious: Yes (Death, Other)
  Sender: AMGEN
  Company Number: RS-AMGEN-SRBSP2024234424

PATIENT
  Age: 59 Year
  Sex: Female

DRUGS (16)
  1. KYPROLIS [Suspect]
     Active Substance: CARFILZOMIB
     Indication: Plasma cell myeloma
     Dosage: 20 MILLIGRAM/SQ. METER (D1, D2, 28 CYCLES)
     Route: 065
     Dates: start: 202312
  2. KYPROLIS [Suspect]
     Active Substance: CARFILZOMIB
     Dosage: 56 MILLIGRAM/SQ. METER (D8, D9, 28 CYCLES)
     Route: 065
  3. KYPROLIS [Suspect]
     Active Substance: CARFILZOMIB
     Dosage: 56 MILLIGRAM/SQ. METER (D15, D16, 28 CYCLES)
     Route: 065
     Dates: end: 202403
  4. FILGRASTIM [Suspect]
     Active Substance: FILGRASTIM
     Indication: Product used for unknown indication
     Dosage: UNK
     Route: 065
     Dates: start: 201603
  5. BORTEZOMIB [Suspect]
     Active Substance: BORTEZOMIB
     Indication: Plasma cell myeloma
     Dosage: UNK (EIGHT CYCLES)
     Route: 065
     Dates: start: 201602
  6. BORTEZOMIB [Suspect]
     Active Substance: BORTEZOMIB
     Dosage: UNK (EIGHT CYCLES)
     Route: 065
     Dates: start: 201804
  7. DEXAMETHASONE [Suspect]
     Active Substance: DEXAMETHASONE
     Indication: Plasma cell myeloma
     Dosage: UNK (EIGHT CYCLES)
     Route: 065
     Dates: start: 201602
  8. DEXAMETHASONE [Suspect]
     Active Substance: DEXAMETHASONE
     Dosage: UNK (EIGHT CYCLES)
     Route: 065
     Dates: start: 201804
  9. DEXAMETHASONE [Suspect]
     Active Substance: DEXAMETHASONE
     Dosage: 20 MILLIGRAM (D1D2D8D9D15D16D22D23 IN 28 CYCLES)
     Route: 065
     Dates: start: 202312
  10. LENALIDOMIDE [Suspect]
     Active Substance: LENALIDOMIDE
     Indication: Plasma cell myeloma
     Dosage: 10 MILLIGRAM
     Route: 065
     Dates: start: 2019
  11. LENALIDOMIDE [Suspect]
     Active Substance: LENALIDOMIDE
     Dosage: 10 MILLIGRAM
     Route: 065
     Dates: start: 202303
  12. DARATUMUMAB [Suspect]
     Active Substance: DARATUMUMAB
     Indication: Plasma cell myeloma
     Dosage: UNK
     Route: 065
     Dates: start: 202105
  13. DARATUMUMAB [Suspect]
     Active Substance: DARATUMUMAB
     Dosage: UNK
     Route: 065
     Dates: start: 202111, end: 202211
  14. DEXAMETHASONE [Suspect]
     Active Substance: DEXAMETHASONE
     Indication: Plasma cell myeloma
     Dosage: UNK UNK, QWK
     Route: 065
     Dates: start: 202303
  15. BISOPROLOL FUMARATE [Concomitant]
     Active Substance: BISOPROLOL FUMARATE
     Indication: Hypertension
     Dosage: 1.25 MILLIGRAM
  16. BISOPROLOL FUMARATE [Concomitant]
     Active Substance: BISOPROLOL FUMARATE
     Indication: Ventricular dysfunction

REACTIONS (14)
  - Death [Fatal]
  - Transient ischaemic attack [Unknown]
  - Chronic kidney disease [Unknown]
  - Cardiac aneurysm [Unknown]
  - Carotid artery stenosis [Unknown]
  - Pathological fracture [Unknown]
  - Polyneuropathy [Unknown]
  - Cerebral small vessel ischaemic disease [Unknown]
  - Plasma cell myeloma [Unknown]
  - Urinary tract infection [Unknown]
  - Ventricular dysfunction [Unknown]
  - Pelvic pain [Unknown]
  - Exercise tolerance decreased [Unknown]
  - Fatigue [Unknown]

NARRATIVE: CASE EVENT DATE: 20240101
